FAERS Safety Report 5353871-9 (Version None)
Quarter: 2007Q2

REPORT INFORMATION
  Report Type: 
  Country: None (occurrence: None)
  Receive Date: 20070608
  Receipt Date: 20070525
  Transmission Date: 20071010
  Serious: Yes (Death)
  Sender: FDA-Public Use
  Company Number: 125

PATIENT
  Sex: Male

DRUGS (1)
  1. FAZACLO ODT [Suspect]
     Indication: DEMENTIA
     Dosage: 50 MG PO DAILY
     Route: 048
     Dates: start: 20070416, end: 20070428

REACTIONS (1)
  - CARDIOPULMONARY FAILURE [None]
